FAERS Safety Report 4370157-X (Version None)
Quarter: 2004Q2

REPORT INFORMATION
  Report Type: 
  Country: None (occurrence: None)
  Receive Date: 20040603
  Receipt Date: 20040426
  Transmission Date: 20050107
  Serious: No
  Sender: FDA-Public Use
  Company Number: US-BRISTOL-MYERS SQUIBB COMPANY-12571238

PATIENT
  Age: 11 Year
  Sex: Female

DRUGS (1)
  1. ABILIFY [Suspect]
     Indication: BIPOLAR DISORDER
     Dosage: STARTED AT 5 MG AUG-2003, INCREASED TO 10 MG, DECREASED TO 5 MG 1 WEEK PRIOR TO REPORT
     Route: 048
     Dates: start: 20030801

REACTIONS (3)
  - ABNORMAL BEHAVIOUR [None]
  - GASTROINTESTINAL DISORDER [None]
  - WEIGHT INCREASED [None]
